FAERS Safety Report 9968873 (Version 1)
Quarter: 2014Q1

REPORT INFORMATION
  Report Type: Report from Study
  Country: US (occurrence: US)
  Receive Date: 20140306
  Receipt Date: 20140306
  Transmission Date: 20141002
  Serious: No
  Sender: FDA-Public Use
  Company Number: US-ABBVIE-13P-163-1142666-00

PATIENT
  Age: 40 Year
  Sex: Male

DRUGS (5)
  1. HUMIRA [Suspect]
     Indication: PSORIASIS
     Dates: start: 201305
  2. METFORMIN [Concomitant]
     Indication: GLUCOSE TOLERANCE IMPAIRED
  3. METOPROLOL [Concomitant]
     Indication: BLOOD PRESSURE
  4. VASARTAN/HCTZ [Concomitant]
     Indication: BLOOD CHOLESTEROL
     Dosage: 160/12.5MG
  5. MEGA RED CRILL OIL [Concomitant]
     Indication: PROPHYLAXIS

REACTIONS (2)
  - Blister [Not Recovered/Not Resolved]
  - Erythema [Not Recovered/Not Resolved]
